FAERS Safety Report 15740830 (Version 1)
Quarter: 2018Q4

REPORT INFORMATION
  Report Type: Spontaneous
  Country: US (occurrence: US)
  Receive Date: 20181219
  Receipt Date: 20181219
  Transmission Date: 20190205
  Serious: No
  Sender: FDA-Public Use
  Company Number: US-INCYTE CORPORATION-2018IN012695

PATIENT

DRUGS (1)
  1. JAKAFI [Suspect]
     Active Substance: RUXOLITINIB
     Indication: MYELOFIBROSIS
     Dosage: 1 TAB BID FOR PLATELET COUNT BETWEEN 50 + 100X10(9) ADJUST DOSE BASED ON RESPONSE TO MAX 25MG BID
     Route: 065
     Dates: start: 20151104

REACTIONS (1)
  - Product dose omission [Unknown]
